FAERS Safety Report 6167568-9 (Version None)
Quarter: 2009Q2

REPORT INFORMATION
  Report Type: 
  Country: None (occurrence: None)
  Receive Date: 20090424
  Receipt Date: 20090325
  Transmission Date: 20091009
  Serious: No
  Sender: FDA-Public Use
  Company Number: US-BAYER-200910963BCC

PATIENT
  Age: 65 Year
  Sex: Female
  Weight: 59 kg

DRUGS (6)
  1. ALEVE (CAPLET) [Suspect]
     Indication: ARTHRALGIA
     Dosage: TOTAL DAILY DOSE: 220 MG  UNIT DOSE: 220 MG
     Route: 048
     Dates: start: 20090321, end: 20090323
  2. ASCORBIC ACID [Concomitant]
  3. VITAMIN B COMPLEX CAP [Concomitant]
  4. COD LIVER OIL [Concomitant]
  5. MSM [Concomitant]
  6. GARLIC [Concomitant]

REACTIONS (1)
  - CONSTIPATION [None]
